FAERS Safety Report 5927622-0 (Version None)
Quarter: 2008Q4

REPORT INFORMATION
  Report Type: 
  Country: None (occurrence: None)
  Receive Date: 20081023
  Receipt Date: 20081015
  Transmission Date: 20090506
  Serious: Yes (Other)
  Sender: FDA-Public Use
  Company Number: US-ROCHE-583327

PATIENT
  Age: 64 Year
  Sex: Female

DRUGS (9)
  1. VALCYTE [Suspect]
     Dosage: DOSE: ONE DOSE FORM DAILY
     Route: 065
  2. CELLCEPT [Suspect]
     Indication: DRUG USE FOR UNKNOWN INDICATION
     Route: 065
     Dates: start: 20010101
  3. XIFAXAN [Concomitant]
  4. PREDNISONE TAB [Concomitant]
  5. VASOTEC [Concomitant]
  6. ATENOLOL [Concomitant]
  7. CALCIUM [Concomitant]
  8. EVISTA [Concomitant]
  9. ASPIRIN [Concomitant]
     Dosage: DRUG REPORTED AS BABY ASPIRIN

REACTIONS (6)
  - ANOREXIA [None]
  - ASTHENIA [None]
  - DIARRHOEA [None]
  - NAUSEA [None]
  - SKIN CANCER [None]
  - WEIGHT DECREASED [None]
